FAERS Safety Report 4881125-3 (Version None)
Quarter: 2005Q4

REPORT INFORMATION
  Report Type: 
  Country: None (occurrence: None)
  Receive Date: 20051223
  Receipt Date: 20050913
  Transmission Date: 20060501
  Serious: No
  Sender: FDA-Public Use
  Company Number: 05P-163-0310861-00

PATIENT
  Age: 66 Year
  Sex: Female
  Weight: 63.5036 kg

DRUGS (12)
  1. HUMIRA [Suspect]
     Indication: RHEUMATOID ARTHRITIS
     Dosage: 40 MG, 1 IN 1 WK, SUBCUTANEOUS
     Route: 058
     Dates: start: 20040701
  2. ATORVASTATIN [Concomitant]
  3. HYZAAR [Concomitant]
  4. CLOPIDOGREL BISULFATE [Concomitant]
  5. ADALAT [Concomitant]
  6. METOPROLOL [Concomitant]
  7. LEVOTHYROXINE SODIUM [Concomitant]
  8. ESTROGENS CONJUGATED [Concomitant]
  9. METHOTREXATE [Concomitant]
  10. FOLIC ACID [Concomitant]
  11. NITROGLYCERIN [Concomitant]
  12. HYDROCODONE BITARTRATE [Concomitant]

REACTIONS (1)
  - DIARRHOEA [None]
